FAERS Safety Report 4734109-X (Version None)
Quarter: 2005Q3

REPORT INFORMATION
  Report Type: 
  Country: None (occurrence: None)
  Receive Date: 20050804
  Receipt Date: 20050726
  Transmission Date: 20060218
  Serious: Yes (Other)
  Sender: FDA-Public Use
  Company Number: SE-JNJFOC-20050604097

PATIENT
  Age: 56 Year
  Sex: Female

DRUGS (6)
  1. REMICADE [Suspect]
     Route: 042
  2. REMICADE [Suspect]
     Indication: RHEUMATOID ARTHRITIS
     Route: 042
  3. METHOTREXATE [Concomitant]
  4. FOLACIN [Concomitant]
  5. FOLACIN [Concomitant]
  6. KALCIPOS [Concomitant]

REACTIONS (4)
  - BONE PAIN [None]
  - FORMICATION [None]
  - INTERVERTEBRAL DISC DISPLACEMENT [None]
  - MYALGIA [None]
